FAERS Safety Report 4692377-7 (Version None)
Quarter: 2005Q2

REPORT INFORMATION
  Report Type: 
  Country: None (occurrence: None)
  Receive Date: 20050615
  Receipt Date: 20050606
  Transmission Date: 20051028
  Serious: Yes (Hospitalization, Other)
  Sender: FDA-Public Use
  Company Number: 2005-06-0270

PATIENT
  Age: 74 Year
  Sex: Male

DRUGS (3)
  1. REBETOL [Suspect]
     Indication: HEPATITIS C
     Dosage: 400 MG BID ORAL
     Route: 048
  2. ROFERON-A [Suspect]
     Indication: HEPATITIS C
     Dosage: 3 MU TIW
  3. SULFAMOXOLE/TRIMETHOPRIM [Concomitant]

REACTIONS (8)
  - ASPIRATION BONE MARROW [None]
  - CHRONIC HEPATITIS [None]
  - DISEASE RECURRENCE [None]
  - HAEMORRHAGE SUBCUTANEOUS [None]
  - HEPATITIS C VIRUS [None]
  - MEGAKARYOCYTES INCREASED [None]
  - SPLENOMEGALY [None]
  - THROMBOCYTOPENIA [None]
